FAERS Safety Report 9519727 (Version 2)
Quarter: 2013Q3

REPORT INFORMATION
  Report Type: Spontaneous
  Country: GB (occurrence: GB)
  Receive Date: 20130912
  Receipt Date: 20130924
  Transmission Date: 20140515
  Serious: Yes (Other)
  Sender: FDA-Public Use
  Company Number: GB-PFIZER INC-2013261181

PATIENT
  Age: 71 Year
  Sex: Male

DRUGS (5)
  1. CISPLATIN [Suspect]
     Indication: FOLLICLE CENTRE LYMPHOMA, FOLLICULAR GRADE I, II, III
     Dosage: UNK
     Route: 065
     Dates: start: 200810, end: 200812
  2. ETOPOSIDE [Suspect]
     Indication: FOLLICLE CENTRE LYMPHOMA, FOLLICULAR GRADE I, II, III
     Dosage: UNK
     Route: 065
     Dates: start: 200810, end: 200812
  3. METHYLPREDNISOLONE [Suspect]
     Indication: FOLLICLE CENTRE LYMPHOMA, FOLLICULAR GRADE I, II, III
     Dosage: UNK
     Dates: start: 200810, end: 200812
  4. CYTARABINE [Suspect]
     Indication: FOLLICLE CENTRE LYMPHOMA, FOLLICULAR GRADE I, II, III
     Dosage: UNK
     Dates: start: 200810, end: 200812
  5. RITUXIMAB [Suspect]
     Indication: FOLLICLE CENTRE LYMPHOMA, FOLLICULAR GRADE I, II, III
     Dosage: UNK
     Dates: start: 200810, end: 200812

REACTIONS (1)
  - Hepatitis B [Recovering/Resolving]
